FAERS Safety Report 4976438-0 (Version None)
Quarter: 2006Q2

REPORT INFORMATION
  Report Type: 
  Country: None (occurrence: None)
  Receive Date: 20060419
  Receipt Date: 20060410
  Transmission Date: 20061013
  Serious: Yes (Hospitalization)
  Sender: FDA-Public Use
  Company Number: CH-ROCHE-443971

PATIENT
  Age: 75 Year
  Sex: Male

DRUGS (7)
  1. TORSEMIDE [Suspect]
     Route: 048
     Dates: start: 20051119, end: 20060104
  2. TORSEMIDE [Suspect]
     Route: 048
     Dates: start: 20060115
  3. COZAAR [Concomitant]
     Dosage: - FORM REPORTED: ^ COATED TABLETS, FILM^ - DURATION REPORTED: ^LONG TERM^ - AT AN UNSPECIFIED DATE;+
     Route: 048
     Dates: start: 20000615, end: 20060303
  4. SORTIS [Concomitant]
     Dosage: FORM REPORTED: ^COATED TABLETS, FILM^ DURATION REPORTED: ^ LONG TERM^
     Route: 048
     Dates: start: 19970615, end: 20060303
  5. DILATREND [Concomitant]
     Route: 048
     Dates: start: 20051119, end: 20060303
  6. ACETYLSALICYLIC ACID SRT [Concomitant]
     Dosage: DURATION REPORTED : ^LONG TERM^
     Route: 048
     Dates: start: 19970615, end: 20060104
  7. PLAVIX [Concomitant]
     Dosage: FORM REPORTED: ^COATED TABLETS, FILM^
     Route: 048
     Dates: start: 20060113, end: 20060303

REACTIONS (1)
  - STEVENS-JOHNSON SYNDROME [None]
